FAERS Safety Report 5188712-6 (Version None)
Quarter: 2006Q4

REPORT INFORMATION
  Report Type: 
  Country: None (occurrence: None)
  Receive Date: 20061214
  Receipt Date: 20061205
  Transmission Date: 20070319
  Serious: Yes (Other)
  Sender: FDA-Public Use
  Company Number: 2006141267

PATIENT
  Age: 84 Year
  Sex: Male
  Weight: 68.9467 kg

DRUGS (2)
  1. AMLODIPINE [Suspect]
     Indication: HYPERTENSION
     Dosage: 10 MG (10 MG,DAILY: EVERY DAY), ORAL
     Route: 048
     Dates: start: 19850101
  2. LISINOPRIL [Concomitant]

REACTIONS (4)
  - ALBUMINURIA [None]
  - DIABETIC NEUROPATHY [None]
  - GLYCOSYLATED HAEMOGLOBIN INCREASED [None]
  - PROTEINURIA [None]
